FAERS Safety Report 12055960 (Version 9)
Quarter: 2016Q4

REPORT INFORMATION
  Report Type: Spontaneous
  Country: US (occurrence: US)
  Receive Date: 20160209
  Receipt Date: 20161017
  Transmission Date: 20170206
  Serious: Yes (Hospitalization, Other)
  Sender: FDA-Public Use
  Company Number: US-CELGENEUS-USA-2016021711

PATIENT
  Age: 71 Year
  Sex: Female
  Weight: 63.11 kg

DRUGS (41)
  1. AVAPRO [Concomitant]
     Active Substance: IRBESARTAN
     Indication: PRODUCT USED FOR UNKNOWN INDICATION
     Route: 048
  2. DILAUDID [Concomitant]
     Active Substance: HYDROMORPHONE HYDROCHLORIDE
     Dosage: 8MG-12MG
     Route: 048
  3. DEXAMETHASONE. [Concomitant]
     Active Substance: DEXAMETHASONE
     Route: 065
     Dates: start: 201402
  4. PERCOCET [Concomitant]
     Active Substance: ACETAMINOPHEN\OXYCODONE HYDROCHLORIDE
     Indication: BACK PAIN
     Dosage: 6-8 TABS
     Route: 048
  5. OXYCONTIN [Concomitant]
     Active Substance: OXYCODONE HYDROCHLORIDE
     Route: 048
  6. DEXAMETHASONE. [Concomitant]
     Active Substance: DEXAMETHASONE
     Route: 065
     Dates: start: 201207
  7. CALCIUM [Concomitant]
     Active Substance: CALCIUM
     Indication: PRODUCT USED FOR UNKNOWN INDICATION
     Route: 065
  8. VITAMIN D [Concomitant]
     Active Substance: CHOLECALCIFEROL
     Indication: PRODUCT USED FOR UNKNOWN INDICATION
     Route: 065
  9. POMALYST [Suspect]
     Active Substance: POMALIDOMIDE
     Indication: PLASMA CELL MYELOMA
     Route: 048
     Dates: start: 20140307
  10. ACYCLOVIR. [Concomitant]
     Active Substance: ACYCLOVIR
     Indication: PRODUCT USED FOR UNKNOWN INDICATION
     Dosage: 20 MILLIGRAM
     Route: 048
  11. DILAUDID [Concomitant]
     Active Substance: HYDROMORPHONE HYDROCHLORIDE
     Indication: PAIN
     Route: 048
  12. CALCIUM [Concomitant]
     Active Substance: CALCIUM
     Route: 065
  13. LIDODERM [Concomitant]
     Active Substance: LIDOCAINE
     Indication: PRODUCT USED FOR UNKNOWN INDICATION
     Route: 065
  14. POMALYST [Suspect]
     Active Substance: POMALIDOMIDE
     Route: 048
     Dates: start: 201407
  15. MICARDIS HCT [Concomitant]
     Active Substance: HYDROCHLOROTHIAZIDE\TELMISARTAN
     Dosage: 80/25
     Route: 065
  16. OXYCONTIN [Concomitant]
     Active Substance: OXYCODONE HYDROCHLORIDE
     Dosage: 100 MILLIGRAM
     Route: 048
  17. SIMVASTATIN. [Concomitant]
     Active Substance: SIMVASTATIN
     Indication: PRODUCT USED FOR UNKNOWN INDICATION
     Route: 065
  18. DECADRON [Concomitant]
     Active Substance: DEXAMETHASONE
     Indication: PRODUCT USED FOR UNKNOWN INDICATION
     Route: 065
  19. LASIX [Concomitant]
     Active Substance: FUROSEMIDE
     Indication: PRODUCT USED FOR UNKNOWN INDICATION
     Route: 065
     Dates: end: 2014
  20. POMALYST [Suspect]
     Active Substance: POMALIDOMIDE
     Dosage: 300 MILLIGRAM
     Route: 048
     Dates: start: 201512, end: 201603
  21. DILAUDID [Concomitant]
     Active Substance: HYDROMORPHONE HYDROCHLORIDE
     Route: 048
  22. OXYCONTIN [Concomitant]
     Active Substance: OXYCODONE HYDROCHLORIDE
     Indication: PAIN
     Route: 048
     Dates: start: 20120628
  23. OXYCONTIN [Concomitant]
     Active Substance: OXYCODONE HYDROCHLORIDE
     Dosage: 40 MILLIGRAM
     Route: 048
  24. ZOMETA [Concomitant]
     Active Substance: ZOLEDRONIC ACID
     Indication: OSTEOPOROSIS
     Route: 065
  25. HYDROMORPHONE [Concomitant]
     Active Substance: HYDROMORPHONE
     Indication: PAIN MANAGEMENT
     Route: 065
  26. ASPIRIN. [Concomitant]
     Active Substance: ASPIRIN
     Route: 065
  27. PERCOCET [Concomitant]
     Active Substance: ACETAMINOPHEN\OXYCODONE HYDROCHLORIDE
     Dosage: 7.5/325
     Route: 048
     Dates: start: 20120628
  28. ATARAX [Concomitant]
     Active Substance: HYDROXYZINE\HYDROXYZINE HYDROCHLORIDE
     Indication: PRODUCT USED FOR UNKNOWN INDICATION
     Route: 065
  29. FUROSEMIDE. [Concomitant]
     Active Substance: FUROSEMIDE
     Indication: PRODUCT USED FOR UNKNOWN INDICATION
     Route: 048
  30. ASPIRIN. [Concomitant]
     Active Substance: ASPIRIN
     Indication: PRODUCT USED FOR UNKNOWN INDICATION
     Dosage: 20 MILLIGRAM
     Route: 048
  31. OXYCONTIN [Concomitant]
     Active Substance: OXYCODONE HYDROCHLORIDE
     Dosage: 900 MILLIGRAM
     Route: 048
  32. DEXAMETHASONE. [Concomitant]
     Active Substance: DEXAMETHASONE
     Indication: PLASMA CELL MYELOMA
     Route: 065
     Dates: start: 201108
  33. HYDROMORPHONE [Concomitant]
     Active Substance: HYDROMORPHONE
     Dosage: 200
     Route: 048
  34. ATIVAN [Concomitant]
     Active Substance: LORAZEPAM
     Indication: PRODUCT USED FOR UNKNOWN INDICATION
     Route: 065
  35. MICARDIS HCT [Concomitant]
     Active Substance: HYDROCHLOROTHIAZIDE\TELMISARTAN
     Indication: PRODUCT USED FOR UNKNOWN INDICATION
     Dosage: 40-12.5
     Route: 065
  36. MICARDIS [Concomitant]
     Active Substance: TELMISARTAN
     Indication: PRODUCT USED FOR UNKNOWN INDICATION
     Route: 048
  37. OXYCONTIN [Concomitant]
     Active Substance: OXYCODONE HYDROCHLORIDE
     Route: 048
  38. DEXAMETHASONE. [Concomitant]
     Active Substance: DEXAMETHASONE
     Route: 065
     Dates: start: 201301, end: 201402
  39. LYRICA [Concomitant]
     Active Substance: PREGABALIN
     Indication: PRODUCT USED FOR UNKNOWN INDICATION
     Dosage: 50
     Route: 065
  40. LASIX [Concomitant]
     Active Substance: FUROSEMIDE
     Route: 065
  41. GABAPENTIN. [Concomitant]
     Active Substance: GABAPENTIN
     Indication: PRODUCT USED FOR UNKNOWN INDICATION
     Route: 065

REACTIONS (3)
  - Cholecystitis [Unknown]
  - Deep vein thrombosis [Recovered/Resolved]
  - Joint swelling [Unknown]

NARRATIVE: CASE EVENT DATE: 201504
